FAERS Safety Report 20742484 (Version 1)
Quarter: 2022Q2

REPORT INFORMATION
  Report Type: Spontaneous
  Country: US (occurrence: US)
  Receive Date: 20220424
  Receipt Date: 20220424
  Transmission Date: 20220720
  Serious: No
  Sender: FDA-Public Use
  Company Number: US-JNJFOC-20220440688

PATIENT
  Age: 62 Year
  Sex: Female

DRUGS (1)
  1. WOMENS ROGAINE UNSCENTED [Suspect]
     Active Substance: MINOXIDIL
     Indication: Alopecia
     Dosage: DOSE: ASSUMES USED AS DIRECTED
     Route: 065
     Dates: start: 2021

REACTIONS (2)
  - Application site irritation [Recovered/Resolved]
  - Application site pain [Recovered/Resolved]
